FAERS Safety Report 9540401 (Version 1)
Quarter: 2013Q3

REPORT INFORMATION
  Report Type: Spontaneous
  Country: CA (occurrence: CA)
  Receive Date: 20130920
  Receipt Date: 20130920
  Transmission Date: 20140515
  Serious: Yes (Hospitalization)
  Sender: FDA-Public Use
  Company Number: CA-GLAXOSMITHKLINE-A1041381A

PATIENT
  Age: 67 Year
  Sex: Female
  Weight: 44.1 kg

DRUGS (5)
  1. ADVAIR [Suspect]
     Indication: COUGH
     Route: 055
  2. BUDESONIDE [Suspect]
     Indication: PRODUCT USED FOR UNKNOWN INDICATION
     Dosage: 64MCG UNKNOWN
     Route: 045
  3. ANTIBIOTICS (UNSPECIFIED) [Suspect]
     Indication: LUNG DISORDER
     Route: 065
  4. ATROVENT [Concomitant]
  5. SALBUTAMOL [Concomitant]

REACTIONS (14)
  - Lung disorder [Unknown]
  - Ill-defined disorder [Unknown]
  - Malaise [Unknown]
  - Asthenia [Unknown]
  - Candida infection [Recovered/Resolved]
  - Sneezing [Unknown]
  - Nasal dryness [Unknown]
  - Nasal obstruction [Unknown]
  - Epistaxis [Unknown]
  - Lung neoplasm malignant [Unknown]
  - Pain [Unknown]
  - Facial bones fracture [Unknown]
  - Tooth fracture [Unknown]
  - Cough [Unknown]
